FAERS Safety Report 5904386-8 (Version None)
Quarter: 2008Q4

REPORT INFORMATION
  Report Type: 
  Country: None (occurrence: None)
  Receive Date: 20081001
  Receipt Date: 20080925
  Transmission Date: 20090506
  Serious: Yes (Hospitalization)
  Sender: FDA-Public Use
  Company Number: PHEH2008US08616

PATIENT
  Age: 70 Year
  Sex: Male

DRUGS (6)
  1. TEKTURNA [Suspect]
     Indication: HYPERTENSION
     Dosage: 150 MG, QD
     Route: 048
  2. ACE INHIBITOR NOS [Concomitant]
  3. ARB [Concomitant]
  4. INSULIN [Concomitant]
  5. STATIN [Concomitant]
  6. ASPIRIN [Concomitant]

REACTIONS (2)
  - BLOOD CREATININE INCREASED [None]
  - FATIGUE [None]
